FAERS Safety Report 13857318 (Version 1)
Quarter: 2017Q3

REPORT INFORMATION
  Report Type: Spontaneous
  Country: CZ (occurrence: CZ)
  Receive Date: 20170810
  Receipt Date: 20170810
  Transmission Date: 20171127
  Serious: Yes (Life-Threatening, Other)
  Sender: FDA-Public Use
  Company Number: CZ-TEVA-794270ISR

PATIENT
  Age: 15 Year
  Sex: Female

DRUGS (4)
  1. CEZERA 5 MG [Suspect]
     Active Substance: LEVOCETIRIZINE DIHYDROCHLORIDE
     Indication: SUICIDE ATTEMPT
     Dosage: 50 MILLIGRAM DAILY;
     Dates: start: 20150918, end: 20150918
  2. IBUPROFEN. [Suspect]
     Active Substance: IBUPROFEN
     Indication: SUICIDE ATTEMPT
     Dosage: 9600 MILLIGRAM DAILY;
     Dates: start: 20150918, end: 20150918
  3. STOPEX [Suspect]
     Active Substance: DEXTROMETHORPHAN HYDROBROMIDE
     Indication: SUICIDE ATTEMPT
     Dosage: 1800 MILLIGRAM DAILY;
     Dates: start: 20150918, end: 20150918
  4. SPIROPENT [Suspect]
     Active Substance: CLENBUTEROL HYDROCHLORIDE
     Indication: SUICIDE ATTEMPT
     Dosage: .2 MILLIGRAM DAILY;
     Dates: start: 20150918, end: 20150918

REACTIONS (4)
  - Intentional overdose [None]
  - Overdose [Unknown]
  - Intentional product misuse [Unknown]
  - Suicide attempt [Unknown]

NARRATIVE: CASE EVENT DATE: 20150918
